FAERS Safety Report 7604429-X (Version None)
Quarter: 2011Q3

REPORT INFORMATION
  Report Type: 
  Country: None (occurrence: None)
  Receive Date: 20110712
  Receipt Date: 20110711
  Transmission Date: 20111222
  Serious: Yes (Hospitalization, Other)
  Sender: FDA-Public Use
  Company Number: CH-AMGEN-CHESP2011028132

PATIENT
  Age: 30 Year
  Sex: Female
  Weight: 79 kg

DRUGS (12)
  1. MODURETIC 5-50 [Concomitant]
     Dosage: UNK
     Route: 048
  2. CORTICOSTEROIDS [Concomitant]
  3. PREDNISONE [Concomitant]
     Dosage: 5 MG, QD
  4. HYDROCHLOROTHIAZID [Concomitant]
  5. MAGNESIUM [Concomitant]
  6. AMILORID [Concomitant]
  7. ZOLPIDEM [Concomitant]
  8. NPLATE [Suspect]
     Indication: IDIOPATHIC THROMBOCYTOPENIC PURPURA
     Dosage: 150 A?G, QWK
     Route: 058
     Dates: start: 20110202
  9. PREDNISOLONE [Concomitant]
     Dosage: 5 MG, UNK
     Route: 048
  10. VALTREX [Concomitant]
     Dosage: UNK
     Route: 048
     Dates: start: 20050101, end: 20110316
  11. NPLATE [Suspect]
  12. NPLATE [Suspect]
     Dosage: 150 A?G, QWK

REACTIONS (4)
  - PLATELET COUNT DECREASED [None]
  - NEUTRALISING ANTIBODIES [None]
  - REBOUND EFFECT [None]
  - CYTOMEGALOVIRUS INFECTION [None]
